FAERS Safety Report 5567026-6 (Version None)
Quarter: 2007Q4

REPORT INFORMATION
  Report Type: 
  Country: None (occurrence: None)
  Receive Date: 20071218
  Receipt Date: 20071218
  Transmission Date: 20080405
  Serious: No
  Sender: FDA-Public Use
  Company Number: None

PATIENT
  Age: 36 Year
  Sex: Male
  Weight: 88.4514 kg

DRUGS (8)
  1. CLOZAPINE [Suspect]
     Indication: SCHIZOPHRENIA
     Dosage: 250MG QD PO
     Route: 048
     Dates: start: 20060101, end: 20060818
  2. TRIHEXYLPHENIDYL [Concomitant]
  3. DIPHENHYDRAMINE HCL [Concomitant]
  4. LEVOTHYROXINEM [Concomitant]
  5. RISPERIDONE [Concomitant]
  6. FLUPHENAZINE [Concomitant]
  7. GEODON [Concomitant]
  8. LITHIUM [Concomitant]

REACTIONS (1)
  - PYREXIA [None]
